FAERS Safety Report 13608457 (Version 2)
Quarter: 2017Q2

REPORT INFORMATION
  Report Type: Spontaneous
  Country: JP (occurrence: JP)
  Receive Date: 20170602
  Receipt Date: 20170614
  Transmission Date: 20170830
  Serious: Yes (Hospitalization)
  Sender: FDA-Public Use
  Company Number: JP-JNJFOC-20170521450

PATIENT
  Age: 85 Year
  Sex: Female

DRUGS (2)
  1. TRAMADOL HYDROCHLORIDE AND ACETAMINOPHEN [Suspect]
     Active Substance: ACETAMINOPHEN\TRAMADOL HYDROCHLORIDE
     Indication: PRODUCT USED FOR UNKNOWN INDICATION
     Dosage: THREE TIMES DAILY
     Route: 048
     Dates: end: 20170518
  2. NAUZELIN [Concomitant]
     Active Substance: DOMPERIDONE
     Route: 065

REACTIONS (2)
  - Nausea [Recovered/Resolved]
  - Humerus fracture [Unknown]

NARRATIVE: CASE EVENT DATE: 20170518
